FAERS Safety Report 7701257-1 (Version None)
Quarter: 2011Q3

REPORT INFORMATION
  Report Type: 
  Country: None (occurrence: None)
  Receive Date: 20110822
  Receipt Date: 20110817
  Transmission Date: 20111222
  Serious: Yes (Other)
  Sender: FDA-Public Use
  Company Number: GB-GLAXOSMITHKLINE-B0717436A

PATIENT
  Sex: Female
  Weight: 60 kg

DRUGS (4)
  1. ZOFRAN [Suspect]
     Dosage: 4MG THREE TIMES PER DAY
     Route: 048
     Dates: start: 20110310, end: 20110427
  2. ZOFRAN [Suspect]
     Indication: VOMITING
     Route: 042
     Dates: start: 20110308, end: 20110310
  3. PROCHLORPERAZINE [Concomitant]
     Indication: VOMITING
     Route: 048
     Dates: start: 20110314
  4. CYCLIZINE [Concomitant]
     Indication: VOMITING
     Dosage: 50MG THREE TIMES PER DAY
     Route: 048
     Dates: start: 20110310

REACTIONS (4)
  - ABORTION SPONTANEOUS [None]
  - HEADACHE [None]
  - MATERNAL EXPOSURE DURING PREGNANCY [None]
  - CONSTIPATION [None]
